FAERS Safety Report 8105908-1 (Version None)
Quarter: 2012Q1

REPORT INFORMATION
  Report Type: 
  Country: None (occurrence: None)
  Receive Date: 20120202
  Receipt Date: 20120123
  Transmission Date: 20120608
  Serious: No
  Sender: FDA-Public Use
  Company Number: US-BIOGENIDEC-2012BI002764

PATIENT
  Sex: Male

DRUGS (3)
  1. FLOMAX [Concomitant]
     Indication: URINARY INCONTINENCE
  2. TYSABRI [Suspect]
     Indication: MULTIPLE SCLEROSIS
     Route: 042
     Dates: start: 20110808
  3. FLOMAX [Concomitant]
     Indication: URINARY RETENTION

REACTIONS (6)
  - FALL [None]
  - SLUGGISHNESS [None]
  - MULTIPLE SCLEROSIS [None]
  - MULTIPLE SCLEROSIS RELAPSE [None]
  - INFECTED DERMAL CYST [None]
  - DERMAL CYST [None]
